FAERS Safety Report 17646429 (Version 2)
Quarter: 2020Q2

REPORT INFORMATION
  Report Type: Spontaneous
  Country: ES (occurrence: ES)
  Receive Date: 20200408
  Receipt Date: 20200410
  Transmission Date: 20200713
  Serious: Yes (Other)
  Sender: FDA-Public Use
  Company Number: ES-ADIENNEP-2020AD000198

PATIENT
  Age: 1 Year
  Sex: Male
  Weight: 8.75 kg

DRUGS (4)
  1. THIOTEPA. [Suspect]
     Active Substance: THIOTEPA
     Indication: CONGENITAL APLASTIC ANAEMIA
     Route: 065
     Dates: start: 20190919
  2. ANTITHYMOCYTE IMMUNOGLOBULIN [Suspect]
     Active Substance: THYMOCYTE IMMUNE GLOBULIN NOS
     Indication: CONGENITAL APLASTIC ANAEMIA
     Route: 065
     Dates: start: 20190919
  3. FLUDARABINE [Suspect]
     Active Substance: FLUDARABINE PHOSPHATE
     Indication: CONGENITAL APLASTIC ANAEMIA
     Route: 065
     Dates: start: 20190919
  4. TREOSULFAN [Suspect]
     Active Substance: TREOSULFAN
     Indication: CONGENITAL APLASTIC ANAEMIA
     Route: 065
     Dates: start: 20190919

REACTIONS (1)
  - Hepatitis [Recovered/Resolved]

NARRATIVE: CASE EVENT DATE: 20190920
